FAERS Safety Report 7541035-X (Version None)
Quarter: 2011Q2

REPORT INFORMATION
  Report Type: 
  Country: None (occurrence: None)
  Receive Date: 20110610
  Receipt Date: 20100826
  Transmission Date: 20111010
  Serious: No
  Sender: FDA-Public Use
  Company Number: A0877902A

PATIENT
  Age: 13 Year
  Sex: Male

DRUGS (1)
  1. ALTABAX [Suspect]
     Indication: STAPHYLOCOCCAL INFECTION
     Dosage: 1APP PER DAY
     Route: 061
     Dates: start: 20100824

REACTIONS (2)
  - WOUND INFECTION [None]
  - PYREXIA [None]
